FAERS Safety Report 5673020-7 (Version None)
Quarter: 2008Q1

REPORT INFORMATION
  Report Type: 
  Country: None (occurrence: None)
  Receive Date: 20080319
  Receipt Date: 20071218
  Transmission Date: 20080703
  Serious: No
  Sender: FDA-Public Use
  Company Number: US-ASTRAZENECA-2007UW28629

PATIENT
  Age: 57 Year
  Sex: Female
  Weight: 72.6 kg

DRUGS (8)
  1. SYMBICORT [Suspect]
     Indication: CHRONIC OBSTRUCTIVE PULMONARY DISEASE
     Route: 055
  2. CALCIUM [Concomitant]
  3. VITAMIN [Concomitant]
  4. PRILOSEC [Concomitant]
  5. NORVASC [Concomitant]
  6. LISINOPRIL [Concomitant]
  7. THEOPHYLLINE [Concomitant]
  8. TYLENOL (CAPLET) [Concomitant]

REACTIONS (1)
  - MYALGIA [None]
